FAERS Safety Report 6564415-8 (Version None)
Quarter: 2010Q1

REPORT INFORMATION
  Report Type: 
  Country: None (occurrence: None)
  Receive Date: 20100201
  Receipt Date: 20100125
  Transmission Date: 20100710
  Serious: Yes (Other)
  Sender: FDA-Public Use
  Company Number: DK-BRACCO-000041

PATIENT
  Sex: Female

DRUGS (12)
  1. ULTRAVIST 150 [Suspect]
     Indication: COMPUTERISED TOMOGRAM ABDOMEN
     Route: 042
     Dates: start: 20070906, end: 20070906
  2. KLIOGEST [Concomitant]
     Route: 048
  3. MAREVAN [Concomitant]
     Route: 048
  4. BERODUAL [Concomitant]
     Route: 055
  5. SELO-ZOK [Concomitant]
     Route: 048
  6. DOLOXENE [Concomitant]
     Route: 048
  7. DIGOXIN [Concomitant]
     Route: 048
  8. FURIX [Concomitant]
     Route: 048
  9. KALEORID [Concomitant]
     Route: 048
  10. IBUPROFEN ACTAVIS [Concomitant]
     Route: 048
  11. SIMVASTATIN KRKA [Concomitant]
     Route: 048
  12. OXIS TURBUHALER [Concomitant]
     Route: 055

REACTIONS (5)
  - ABDOMINAL PAIN [None]
  - ARTHRALGIA [None]
  - INSOMNIA [None]
  - PAIN IN EXTREMITY [None]
  - PRURITUS [None]
